FAERS Safety Report 5508989-4 (Version None)
Quarter: 2007Q4

REPORT INFORMATION
  Report Type: 
  Country: None (occurrence: None)
  Receive Date: 20071107
  Receipt Date: 20071031
  Transmission Date: 20080405
  Serious: Yes (Hospitalization)
  Sender: FDA-Public Use
  Company Number: PHHO2007DE16588

PATIENT
  Age: 76 Year
  Sex: Male
  Weight: 81.4 kg

DRUGS (8)
  1. AMN107 [Suspect]
     Indication: GASTROINTESTINAL STROMAL TUMOUR
     Dosage: 800MG DAILY
     Route: 048
     Dates: start: 20070621, end: 20071005
  2. ASPIRIN [Concomitant]
  3. LEVOTHYROXINE SODIUM [Concomitant]
     Dosage: 150 MG, QD
  4. CAPTOPRIL [Concomitant]
     Dosage: 50 MG, QD
  5. METOPROLOL TARTRATE [Concomitant]
     Dosage: 25 MG, BID
  6. PANTOPRAZOLE SODIUM [Concomitant]
     Dosage: 40 MG, QD
  7. KEPPRA [Concomitant]
     Dosage: 500 MG, TID
  8. AVELOX [Concomitant]
     Dosage: 400 MG, QD

REACTIONS (6)
  - FATIGUE [None]
  - LIPASE INCREASED [None]
  - MALIGNANT NEOPLASM PROGRESSION [None]
  - OEDEMA [None]
  - PANCREATITIS [None]
  - PYREXIA [None]
